FAERS Safety Report 4273293-1 (Version None)
Quarter: 2004Q1

REPORT INFORMATION
  Report Type: 
  Country: None (occurrence: None)
  Receive Date: 20040119
  Receipt Date: 20040113
  Transmission Date: 20041129
  Serious: Yes (Hospitalization)
  Sender: FDA-Public Use
  Company Number: 200410309US

PATIENT
  Sex: Female
  Weight: 73.02 kg

DRUGS (10)
  1. DOCETAXEL [Suspect]
     Indication: BREAST CANCER
     Route: 042
     Dates: start: 20031118, end: 20031209
  2. GEMCITABINE [Suspect]
     Indication: BREAST CANCER
     Route: 042
     Dates: start: 20031118, end: 20031209
  3. EPIRUBICIN [Suspect]
     Indication: BREAST CANCER
     Route: 042
     Dates: start: 20031118, end: 20031209
  4. COUMADIN [Concomitant]
     Route: 048
     Dates: start: 20031117
  5. COMPAZINE [Concomitant]
     Indication: NAUSEA
     Dosage: DOSE: 10 MG HS PRN
     Route: 048
     Dates: start: 20031117
  6. COMPAZINE [Concomitant]
     Indication: VOMITING
     Dosage: DOSE: 10 MG HS PRN
     Route: 048
     Dates: start: 20031117
  7. ZOFRAN [Concomitant]
     Indication: NAUSEA
     Route: 048
     Dates: start: 20031117
  8. ZOFRAN [Concomitant]
     Indication: VOMITING
     Route: 048
     Dates: start: 20031117
  9. PHENERGAN HCL [Concomitant]
     Indication: NAUSEA
     Dosage: DOSE: 2.5 MG EVERY 8 HOURS PRN
     Route: 054
     Dates: start: 20031117
  10. PHENERGAN HCL [Concomitant]
     Indication: VOMITING
     Dosage: DOSE: 2.5 MG EVERY 8 HOURS PRN
     Route: 054
     Dates: start: 20031117

REACTIONS (6)
  - BLOOD AMYLASE INCREASED [None]
  - HEADACHE [None]
  - LIPASE INCREASED [None]
  - NAUSEA [None]
  - VOMITING [None]
  - WHITE BLOOD CELL COUNT DECREASED [None]
